FAERS Safety Report 21363964 (Version 3)
Quarter: 2022Q4

REPORT INFORMATION
  Report Type: Other
  Country: CL (occurrence: None)
  Receive Date: 20220922
  Receipt Date: 20221227
  Transmission Date: 20230113
  Serious: Yes (Other)
  Sender: FDA-Public Use
  Company Number: CL-ROCHE-3180769

PATIENT
  Sex: Male

DRUGS (5)
  1. OCREVUS [Suspect]
     Active Substance: OCRELIZUMAB
     Indication: Relapsing-remitting multiple sclerosis
     Route: 065
     Dates: start: 202202
  2. MABTHERA [Suspect]
     Active Substance: RITUXIMAB
     Indication: Relapsing-remitting multiple sclerosis
     Route: 042
  3. LEVOTHYROXINE SODIUM [Concomitant]
     Active Substance: LEVOTHYROXINE SODIUM
     Indication: Hypothyroidism
     Route: 048
  4. RIFAMPIN [Concomitant]
     Active Substance: RIFAMPIN
     Dosage: 6 WEEKLY TABLETS (900 MG) / WEEKLY (ON TUESDAYS), FOR 3 MONTHS (TOTAL TREATMENT)
     Route: 048
  5. ISONIAZID [Concomitant]
     Active Substance: ISONIAZID
     Dosage: 9 TABLETS (900 MG) / WEEKLY (ON TUESDAYS), FOR 3 MONTHS (TOTAL TREATMENT).
     Route: 048

REACTIONS (2)
  - Tuberculosis [Unknown]
  - Off label use [Unknown]

NARRATIVE: CASE EVENT DATE: 20220824
